FAERS Safety Report 6242542-2 (Version None)
Quarter: 2009Q2

REPORT INFORMATION
  Report Type: 
  Country: None (occurrence: None)
  Receive Date: 20090624
  Receipt Date: 20090618
  Transmission Date: 20091009
  Serious: Yes (Other)
  Sender: FDA-Public Use
  Company Number: US-ROCHE-639229

PATIENT
  Sex: Male
  Weight: 83.9 kg

DRUGS (1)
  1. XELODA [Suspect]
     Indication: RENAL CANCER
     Dosage: TAKEN THREE TABLETS.
     Route: 048
     Dates: start: 20090415, end: 20090617

REACTIONS (1)
  - DISEASE PROGRESSION [None]
